FAERS Safety Report 9932534 (Version 4)
Quarter: 2014Q3

REPORT INFORMATION
  Report Type: Spontaneous
  Country: IT (occurrence: None)
  Receive Date: 20140226
  Receipt Date: 20140707
  Transmission Date: 20150326
  Serious: Yes (Other)
  Sender: FDA-Public Use
  Company Number: AUR-APL-2014-01949

PATIENT
  Age: 91 Year
  Sex: Female

DRUGS (6)
  1. ACEDIUR(CAPOZIDE) [Concomitant]
  2. LEVEMIR [Suspect]
     Active Substance: INSULIN DETEMIR
     Indication: DIABETES MELLITUS
     Route: 058
     Dates: start: 20120101
  3. LEVOFLOXACINA [Suspect]
     Active Substance: LEVOFLOXACIN
     Indication: UPPER RESPIRATORY TRACT INFECTION
     Dates: start: 20131128, end: 20131212
  4. CREON (PANCREATIN) [Concomitant]
  5. MUCOSOLVAN (AMBROXOL HYDROCHLORIDE) [Concomitant]
  6. HUMULIN NOS [Suspect]
     Active Substance: INSULIN HUMAN
     Indication: DIABETES MELLITUS
     Route: 058
     Dates: start: 20120101, end: 20131213

REACTIONS (1)
  - Hypoglycaemic coma [None]

NARRATIVE: CASE EVENT DATE: 20131213
